FAERS Safety Report 18263719 (Version 1)
Quarter: 2020Q3

REPORT INFORMATION
  Report Type: Spontaneous
  Country: US (occurrence: US)
  Receive Date: 20200914
  Receipt Date: 20200914
  Transmission Date: 20201103
  Serious: Yes (Death, Disabling, Other)
  Sender: FDA-Public Use
  Company Number: US-PURDUE-USA-2020-0165997

PATIENT
  Sex: Male

DRUGS (2)
  1. MS CONTIN [Suspect]
     Active Substance: MORPHINE SULFATE
     Indication: PRODUCT USED FOR UNKNOWN INDICATION
     Dosage: UNK
     Route: 048
  2. OXYCONTIN [Suspect]
     Active Substance: OXYCODONE HYDROCHLORIDE
     Indication: PRODUCT USED FOR UNKNOWN INDICATION
     Dosage: UNK
     Route: 048

REACTIONS (11)
  - Overdose [Unknown]
  - Communication disorder [Unknown]
  - Depression [Unknown]
  - Death [Fatal]
  - Personality change [Unknown]
  - Drug withdrawal syndrome [Unknown]
  - Product prescribing issue [Unknown]
  - Walking disability [Unknown]
  - Feeding disorder [Unknown]
  - Mental disorder [Unknown]
  - Drug dependence [Unknown]
